FAERS Safety Report 10343330 (Version 3)
Quarter: 2014Q4

REPORT INFORMATION
  Report Type: Spontaneous
  Country: CO (occurrence: None)
  Receive Date: 20140723
  Receipt Date: 20141016
  Transmission Date: 20150528
  Serious: Yes (Other)
  Sender: FDA-Public Use
  Company Number: 2014-20000

PATIENT
  Age: 59 Year
  Sex: Female

DRUGS (1)
  1. EYLEA [Suspect]
     Active Substance: AFLIBERCEPT
     Indication: AGE-RELATED MACULAR DEGENERATION
     Dosage: 1 DF, UNK, INTRAOCULAR ?
     Route: 031
     Dates: start: 20140615

REACTIONS (5)
  - Vision blurred [None]
  - Eye haemorrhage [None]
  - Macular fibrosis [None]
  - Visual impairment [None]
  - Blindness unilateral [None]

NARRATIVE: CASE EVENT DATE: 2014
